FAERS Safety Report 9524420 (Version 1)
Quarter: 2013Q1

REPORT INFORMATION
  Report Type: Spontaneous
  Country: US (occurrence: None)
  Receive Date: 20130305
  Receipt Date: 20130305
  Transmission Date: 20140127
  Serious: Yes (Other)
  Sender: FDA-Public Use
  Company Number: 163-21880-12031536

PATIENT
  Age: 62 Year
  Sex: Male
  Weight: 85.19 kg

DRUGS (6)
  1. REVLIMID [Suspect]
     Indication: MYELODYSPLASTIC SYNDROME
     Dosage: 10 MG, 1 IN 1 D, PO
     Route: 048
     Dates: start: 201110
  2. VIDAZA [Suspect]
     Dosage: 150 MG, DAILY X 7 DAYS, UNK
  3. AMBIEN (ZOLPIDEM TARTRATE) (UNKNOWN) [Concomitant]
  4. LEVAQUIN (LEVOFLOXACIN) (UNKNOWN) [Concomitant]
  5. COMPAZINE (PROCHLORPERAZINE EDISYLATE) (UNKNOWN) [Concomitant]
  6. METFORMIN (METFORMIN) (UNKNOWN) [Concomitant]

REACTIONS (1)
  - Platelet count decreased [None]
